FAERS Safety Report 13150411 (Version 6)
Quarter: 2017Q1

REPORT INFORMATION
  Report Type: Spontaneous
  Country: US (occurrence: US)
  Receive Date: 20170125
  Receipt Date: 20170316
  Transmission Date: 20170428
  Serious: Yes (Hospitalization, Other)
  Sender: FDA-Public Use
  Company Number: US-PFIZER INC-2017030257

PATIENT
  Age: 38 Year
  Sex: Female
  Weight: 77 kg

DRUGS (16)
  1. ASPIRIN BAYER [Concomitant]
     Active Substance: ASPIRIN
     Dosage: UNK, (2-3 TIMES A WEEK)
     Dates: start: 2003
  2. LISINOPRIL. [Concomitant]
     Active Substance: LISINOPRIL
     Indication: BLOOD PRESSURE INCREASED
     Dosage: 20 MG, 1X/DAY
     Route: 048
     Dates: start: 2016
  3. HCTZ [Concomitant]
     Active Substance: HYDROCHLOROTHIAZIDE
     Indication: RENAL FAILURE
  4. PREMARIN [Suspect]
     Active Substance: ESTROGENS, CONJUGATED
     Indication: OSTEOPOROSIS PROPHYLAXIS
  5. VITAMIN D [Concomitant]
     Active Substance: CHOLECALCIFEROL
     Indication: OSTEOPOROSIS
  6. ASPIRIN. [Concomitant]
     Active Substance: ASPIRIN
     Dosage: 83 MG, 1X/DAY
     Route: 048
  7. CLARITIN [Concomitant]
     Active Substance: LORATADINE
     Indication: DRUG HYPERSENSITIVITY
     Dosage: UNK, 1X/DAY
  8. LISINOPRIL. [Concomitant]
     Active Substance: LISINOPRIL
     Indication: PULMONARY HYPERTENSION
     Dosage: UNK
     Dates: start: 2014
  9. LISINOPRIL. [Concomitant]
     Active Substance: LISINOPRIL
     Indication: BLOOD PRESSURE MEASUREMENT
  10. VITAMIN D [Concomitant]
     Active Substance: CHOLECALCIFEROL
     Indication: BONE DISORDER
     Dosage: 400 MG, 1X/DAY
     Route: 048
     Dates: start: 2014
  11. ABILIFY [Concomitant]
     Active Substance: ARIPIPRAZOLE
     Indication: BIPOLAR DISORDER
     Dosage: 0.5 MG, 1X/DAY
     Dates: start: 2004
  12. ABILIFY [Concomitant]
     Active Substance: ARIPIPRAZOLE
     Dosage: 5 MG, 1X/DAY
     Route: 048
  13. PREMARIN [Suspect]
     Active Substance: ESTROGENS, CONJUGATED
     Indication: HORMONE REPLACEMENT THERAPY
     Dosage: 0.625 MG, 1X/DAY
     Route: 048
     Dates: start: 200207, end: 200306
  14. PREMARIN [Suspect]
     Active Substance: ESTROGENS, CONJUGATED
     Indication: OSTEOPOROSIS
  15. HCTZ [Concomitant]
     Active Substance: HYDROCHLOROTHIAZIDE
     Indication: RENAL DISORDER
     Dosage: 12.5 MG, 1X/DAY
  16. HCTZ [Concomitant]
     Active Substance: HYDROCHLOROTHIAZIDE
     Indication: BLOOD PRESSURE INCREASED

REACTIONS (16)
  - Pulmonary embolism [Recovered/Resolved with Sequelae]
  - Chest pain [Unknown]
  - Sinus arrhythmia [Unknown]
  - Organ failure [Unknown]
  - Renal disorder [Unknown]
  - Angiopathy [Not Recovered/Not Resolved]
  - Blood folate increased [Unknown]
  - Bipolar disorder [Not Recovered/Not Resolved]
  - Thrombosis [Unknown]
  - Dyspnoea [Recovering/Resolving]
  - Post-traumatic stress disorder [Unknown]
  - Hypertension [Not Recovered/Not Resolved]
  - Abdominal discomfort [Recovered/Resolved with Sequelae]
  - Shock [Unknown]
  - Liver disorder [Unknown]
  - Paraesthesia [Unknown]

NARRATIVE: CASE EVENT DATE: 2002
